FAERS Safety Report 13727409 (Version 4)
Quarter: 2017Q3

REPORT INFORMATION
  Report Type: Report from Study
  Country: None (occurrence: US)
  Receive Date: 20170706
  Receipt Date: 20170926
  Transmission Date: 20171127
  Serious: Yes (Other)
  Sender: FDA-Public Use
  Company Number: US-ABBVIE-17K-163-2029984-00

PATIENT
  Age: 41 Year
  Sex: Female

DRUGS (2)
  1. HUMIRA [Suspect]
     Active Substance: ADALIMUMAB
     Indication: PSORIATIC ARTHROPATHY
     Route: 058
  2. HUMIRA [Suspect]
     Active Substance: ADALIMUMAB
     Route: 058
     Dates: start: 20170917

REACTIONS (5)
  - Skin hypertrophy [Recovering/Resolving]
  - Carpal tunnel syndrome [Unknown]
  - Postoperative wound infection [Not Recovered/Not Resolved]
  - Impaired healing [Unknown]
  - Incision site complication [Recovering/Resolving]

NARRATIVE: CASE EVENT DATE: 20170703
